FAERS Safety Report 10186565 (Version 2)
Quarter: 2014Q2

REPORT INFORMATION
  Report Type: Spontaneous
  Country: US (occurrence: US)
  Receive Date: 20140521
  Receipt Date: 20140619
  Transmission Date: 20141212
  Serious: No
  Sender: FDA-Public Use
  Company Number: US-TEVA-483197USA

PATIENT
  Age: 44 Year
  Sex: Female
  Weight: 69.46 kg

DRUGS (2)
  1. PARAGARD 380A [Suspect]
     Indication: CONTRACEPTION
     Route: 015
     Dates: start: 20140320, end: 20140519
  2. SINGULAIR [Concomitant]
     Indication: MULTIPLE ALLERGIES

REACTIONS (1)
  - Device expulsion [Recovered/Resolved]
